FAERS Safety Report 4453708-6 (Version None)
Quarter: 2004Q3

REPORT INFORMATION
  Report Type: 
  Country: None (occurrence: None)
  Receive Date: 20040920
  Receipt Date: 20040712
  Transmission Date: 20050211
  Serious: Yes (Other)
  Sender: FDA-Public Use
  Company Number: PHFR2004GB02801

PATIENT
  Age: 23 Year
  Sex: Male

DRUGS (3)
  1. CLOZAPINE [Suspect]
     Indication: SCHIZOPHRENIA
     Dates: start: 20040527
  2. CLOZAPINE [Suspect]
     Dosage: 900MG/DAY
     Route: 048
     Dates: start: 20040709, end: 20040713
  3. PROCYCLIDINE [Concomitant]
     Dosage: 5 MG, BID
     Route: 048

REACTIONS (2)
  - CONVULSION [None]
  - MEDICATION ERROR [None]
